FAERS Safety Report 10210114 (Version 1)
Quarter: 2014Q2

REPORT INFORMATION
  Report Type: Spontaneous
  Country: US (occurrence: US)
  Receive Date: 20140602
  Receipt Date: 20140602
  Transmission Date: 20141212
  Serious: No
  Sender: FDA-Public Use
  Company Number: US-009507513-1405USA013259

PATIENT
  Age: 31 Year
  Sex: Female
  Weight: 54.42 kg

DRUGS (1)
  1. IMPLANON [Suspect]
     Indication: CONTRACEPTION
     Dosage: 1 ROD EVERY 3 YEARS
     Route: 059
     Dates: start: 20121119

REACTIONS (5)
  - Menstruation irregular [Unknown]
  - Metrorrhagia [Unknown]
  - Rash generalised [Unknown]
  - Pruritus generalised [Unknown]
  - Urine odour abnormal [Unknown]
